FAERS Safety Report 11883897 (Version 2)
Quarter: 2016Q1

REPORT INFORMATION
  Report Type: Spontaneous
  Country: FR (occurrence: FR)
  Receive Date: 20160101
  Receipt Date: 20160122
  Transmission Date: 20160526
  Serious: Yes (Hospitalization)
  Sender: FDA-Public Use
  Company Number: FR-PIERRE FABRE-1046067

PATIENT
  Age: 71 Year
  Sex: Male

DRUGS (3)
  1. NAVELBINE [Suspect]
     Active Substance: VINORELBINE TARTRATE
     Indication: PLEURAL MESOTHELIOMA
     Route: 042
     Dates: start: 20150904, end: 20151016
  2. KARDEGIC [Concomitant]
     Active Substance: ASPIRIN LYSINE
     Route: 065
  3. BISOPROLOL FUMARATE. [Concomitant]
     Active Substance: BISOPROLOL FUMARATE
     Route: 065

REACTIONS (8)
  - Hepatocellular injury [Unknown]
  - Confusional state [Unknown]
  - Seizure [Unknown]
  - Pancreatitis [Recovered/Resolved]
  - Agranulocytosis [Unknown]
  - Pyrexia [Unknown]
  - Off label use [Unknown]
  - Sepsis [Unknown]

NARRATIVE: CASE EVENT DATE: 20151024
